FAERS Safety Report 16023836 (Version 2)
Quarter: 2019Q1

REPORT INFORMATION
  Report Type: Spontaneous
  Country: CH (occurrence: CH)
  Receive Date: 20190301
  Receipt Date: 20190321
  Transmission Date: 20190418
  Serious: Yes (Other)
  Sender: FDA-Public Use
  Company Number: CH-PFIZER INC-2019088480

PATIENT
  Age: 67 Year
  Sex: Male
  Weight: 77.6 kg

DRUGS (18)
  1. OBRACIN [Suspect]
     Active Substance: TOBRAMYCIN
     Dosage: 150 MG, SINGLE (IN TOTAL)
     Route: 042
     Dates: start: 20190109, end: 20190109
  2. TOREM [TORASEMIDE] [Suspect]
     Active Substance: TORSEMIDE
     Dosage: 200 MG, 1X/DAY ( 1-0-0-0)
     Route: 048
  3. CALCIUM ACETATE. [Concomitant]
     Active Substance: CALCIUM ACETATE
     Dosage: 1000 MG, 3X/DAY (EVERY 8 HOURS, 2-2-2-0)
     Route: 048
  4. ZAVICEFTA [Concomitant]
     Active Substance: AVIBACTAM SODIUM\CEFTAZIDIME
     Dosage: 1 DF, IN TOTAL
     Route: 042
     Dates: start: 20190107, end: 20190107
  5. ZAVICEFTA [Concomitant]
     Active Substance: AVIBACTAM SODIUM\CEFTAZIDIME
     Dosage: 1 DF, IN TOTAL
     Route: 042
     Dates: start: 20190109, end: 20190109
  6. METOPROLOL MEPHA ZOK [Concomitant]
     Active Substance: METOPROLOL SUCCINATE
     Dosage: 50 MG, 2X/DAY (EVERY 12 HOURS, 1-0-1-0)
     Route: 048
  7. RENAGEL [Concomitant]
     Active Substance: SEVELAMER HYDROCHLORIDE
     Dosage: 800 MG, 3X/DAY (EVERY 8 HOURS, 1-1-1-0)
     Route: 048
  8. ZAVICEFTA [Concomitant]
     Active Substance: AVIBACTAM SODIUM\CEFTAZIDIME
     Indication: PSEUDOMONAS INFECTION
     Dosage: 1 DF, IN TOTAL
     Route: 042
     Dates: start: 20190104, end: 20190104
  9. ZAVICEFTA [Concomitant]
     Active Substance: AVIBACTAM SODIUM\CEFTAZIDIME
     Dosage: 2 DF, IN TOTAL
     Route: 042
     Dates: start: 20190111, end: 20190111
  10. OBRACIN [Suspect]
     Active Substance: TOBRAMYCIN
     Dosage: 150 MG, SINGLE (IN TOTAL)
     Route: 042
     Dates: start: 20190106, end: 20190106
  11. CITALOPRAM MEPHA [Concomitant]
     Active Substance: CITALOPRAM HYDROBROMIDE
     Dosage: 20 MG, 1X/DAY (0-0-1-0)
     Route: 048
  12. DIALVIT [Concomitant]
     Dosage: 1 DF, 1X/DAY ( 0-0-2-0)
     Route: 048
  13. QUETIAPIN SANDOZ [Concomitant]
     Active Substance: QUETIAPINE
     Dosage: 12.5 MG, 1X/DAY (0-0-0-1/2)
     Route: 048
  14. OBRACIN [Suspect]
     Active Substance: TOBRAMYCIN
     Indication: PSEUDOMONAS INFECTION
     Dosage: 150 MG, SINGLE (IN TOTAL)
     Route: 042
     Dates: start: 20190104, end: 20190104
  15. ZAVICEFTA [Concomitant]
     Active Substance: AVIBACTAM SODIUM\CEFTAZIDIME
     Dosage: 1 DF, IN TOTAL
     Route: 042
     Dates: start: 20190106, end: 20190106
  16. VORICONAZOLE. [Suspect]
     Active Substance: VORICONAZOLE
     Indication: BRONCHOPULMONARY ASPERGILLOSIS
     Dosage: 250 MG, 2X/DAY (EVERY 12 HOURS)
     Route: 048
     Dates: start: 201612
  17. RANITIDIN-MEPHA [Concomitant]
     Dosage: 150 MG, 1X/DAY (0-0-1-0)
     Route: 048
  18. MARCOUMAR [Concomitant]
     Active Substance: PHENPROCOUMON
     Dosage: 1 DF, 1X/DAY
     Route: 048

REACTIONS (2)
  - Deafness [Not Recovered/Not Resolved]
  - Ototoxicity [Not Recovered/Not Resolved]

NARRATIVE: CASE EVENT DATE: 20190110
